FAERS Safety Report 7099507-0 (Version None)
Quarter: 2010Q4

REPORT INFORMATION
  Report Type: 
  Country: None (occurrence: None)
  Receive Date: 20101112
  Receipt Date: 20101012
  Transmission Date: 20110411
  Serious: Yes (Hospitalization)
  Sender: FDA-Public Use
  Company Number: US-ROCHE-740646

PATIENT
  Sex: Female
  Weight: 87.9 kg

DRUGS (5)
  1. CAPECITABINE [Suspect]
     Dosage: 1500 MG, BID
     Route: 048
     Dates: start: 20060714
  2. BLINDED BEVACIZUMAB [Suspect]
     Dosage: 1275 MG, Q3W
     Route: 042
     Dates: start: 20060714
  3. PLACEBO [Suspect]
     Dosage: 1275 MG, Q3W
     Route: 042
     Dates: start: 20060714
  4. HEPARIN [Concomitant]
     Route: 058
  5. METOPROLOL [Concomitant]
     Indication: HYPERTENSION

REACTIONS (1)
  - MENTAL STATUS CHANGES [None]
